FAERS Safety Report 19746323 (Version 2)
Quarter: 2021Q3

REPORT INFORMATION
  Report Type: Report from Study
  Country: CO (occurrence: CO)
  Receive Date: 20210825
  Receipt Date: 20210916
  Transmission Date: 20211014
  Serious: Yes (Death, Hospitalization)
  Sender: FDA-Public Use
  Company Number: CO-ASTRAZENECA-2021A693583

PATIENT
  Age: 18644 Day
  Sex: Female

DRUGS (1)
  1. TAGRISSO [Suspect]
     Active Substance: OSIMERTINIB
     Indication: NEOPLASM
     Route: 048
     Dates: start: 20210528

REACTIONS (4)
  - Death [Fatal]
  - Aphasia [Fatal]
  - Amnesia [Fatal]
  - Asthenia [Fatal]

NARRATIVE: CASE EVENT DATE: 20210608
